FAERS Safety Report 4364287-6 (Version None)
Quarter: 2004Q2

REPORT INFORMATION
  Report Type: 
  Country: None (occurrence: None)
  Receive Date: 20040519
  Receipt Date: 20040506
  Transmission Date: 20050107
  Serious: Yes (Hospitalization)
  Sender: FDA-Public Use
  Company Number: US-SHR-04-022922

PATIENT
  Age: 72 Year
  Sex: Male
  Weight: 88.4 kg

DRUGS (8)
  1. CAMPATH [Suspect]
     Indication: CHRONIC LYMPHOCYTIC LEUKAEMIA
     Dosage: 30 MG, 3X/WEEK, SUBCUTANEOUS
     Route: 058
     Dates: start: 20040119, end: 20040409
  2. TYLENOL [Concomitant]
  3. BENADRYL (ACHE) (DIPHENHYDRAMINE HYDROCHLORIDE, AMMONIUM CHLORIDE, MEN [Concomitant]
  4. BACTRIM DS [Concomitant]
  5. ACYCLOVIR [Concomitant]
  6. PREDNISONE [Concomitant]
  7. FOLIC ACID [Concomitant]
  8. STOOL SOFTENER (DOCUSATE SODIUM) [Concomitant]

REACTIONS (12)
  - AKINESIA [None]
  - AORTIC ATHEROSCLEROSIS [None]
  - BRAIN NATRIURETIC PEPTIDE INCREASED [None]
  - CARDIAC FAILURE CONGESTIVE [None]
  - CARDIOMYOPATHY [None]
  - CHRONIC OBSTRUCTIVE AIRWAYS DISEASE EXACERBATED [None]
  - DILATATION ATRIAL [None]
  - MITRAL VALVE INCOMPETENCE [None]
  - PLATELET COUNT DECREASED [None]
  - PNEUMONIA [None]
  - VENTRICULAR HYPOKINESIA [None]
  - WHITE BLOOD CELL COUNT DECREASED [None]
